FAERS Safety Report 20727940 (Version 1)
Quarter: 2022Q2

REPORT INFORMATION
  Report Type: Spontaneous
  Country: US (occurrence: US)
  Receive Date: 20220419
  Receipt Date: 20220419
  Transmission Date: 20220721
  Serious: Yes (Death, Other)
  Sender: FDA-Public Use
  Company Number: US-BRISTOL-MYERS SQUIBB COMPANY-2022-018886

PATIENT
  Age: 75 Year
  Sex: Male

DRUGS (8)
  1. POMALYST [Suspect]
     Active Substance: POMALIDOMIDE
     Indication: Plasma cell myeloma
     Dosage: TAKE 1 CAPSULE BY MOUTH DAILY FOR 21 DAYS, THEN 1 WEEK OFF
     Route: 048
     Dates: start: 20220308
  2. LISINOPRIL [Concomitant]
     Active Substance: LISINOPRIL
  3. REVLIMID [Concomitant]
     Active Substance: LENALIDOMIDE
  4. OMEPRAZOLE [Concomitant]
     Active Substance: OMEPRAZOLE
  5. ALLOPURINOL [Concomitant]
     Active Substance: ALLOPURINOL
  6. ASPIRIN [Concomitant]
     Active Substance: ASPIRIN
  7. PAROXETINE [Concomitant]
     Active Substance: PAROXETINE
  8. VALTREX [Concomitant]
     Active Substance: VALACYCLOVIR HYDROCHLORIDE

REACTIONS (1)
  - Death [Fatal]

NARRATIVE: CASE EVENT DATE: 20220401
